FAERS Safety Report 20291153 (Version 1)
Quarter: 2022Q1

REPORT INFORMATION
  Report Type: Spontaneous
  Country: ES (occurrence: ES)
  Receive Date: 20220104
  Receipt Date: 20220104
  Transmission Date: 20220423
  Serious: Yes (Hospitalization)
  Sender: FDA-Public Use
  Company Number: ES-RECKITT BENCKISER HEALTHCARE INT LIMITED-RB-101069-2021

PATIENT
  Age: 50 Year
  Sex: Female

DRUGS (2)
  1. IBUPROFEN [Suspect]
     Active Substance: IBUPROFEN
     Indication: Rash pruritic
     Dosage: UNK
     Route: 065
  2. VALACYCLOVIR HYDROCHLORIDE [Suspect]
     Active Substance: VALACYCLOVIR HYDROCHLORIDE
     Indication: Rash pruritic
     Dosage: UNK
     Route: 065

REACTIONS (5)
  - Lymphadenopathy [Unknown]
  - Blister [Unknown]
  - Skin lesion [Unknown]
  - Rash erythematous [Unknown]
  - Pustule [Unknown]
